FAERS Safety Report 5091297-6 (Version None)
Quarter: 2006Q3

REPORT INFORMATION
  Report Type: 
  Country: None (occurrence: None)
  Receive Date: 20060825
  Receipt Date: 20060825
  Transmission Date: 20061208
  Serious: Yes (Hospitalization, Other)
  Sender: FDA-Public Use
  Company Number: None

PATIENT
  Age: 51 Year
  Sex: Female
  Weight: 98 kg

DRUGS (1)
  1. HEMIN 313 MG VIAL [Suspect]
     Indication: PORPHYRIA
     Dosage: 313 MG DAILY IV X 4
     Route: 042
     Dates: start: 20060815, end: 20060818

REACTIONS (7)
  - BACTERIA BLOOD IDENTIFIED [None]
  - DEEP VEIN THROMBOSIS [None]
  - INFUSION SITE CELLULITIS [None]
  - INFUSION SITE EXTRAVASATION [None]
  - INFUSION SITE PAIN [None]
  - INFUSION SITE PHLEBITIS [None]
  - OEDEMA PERIPHERAL [None]
